FAERS Safety Report 7335186-2 (Version None)
Quarter: 2011Q1

REPORT INFORMATION
  Report Type: 
  Country: None (occurrence: None)
  Receive Date: 20110302
  Receipt Date: 20110302
  Transmission Date: 20110831
  Serious: No
  Sender: FDA-Public Use
  Company Number: None

PATIENT
  Sex: Female
  Weight: 52.1637 kg

DRUGS (2)
  1. FOSAMAX [Suspect]
     Dosage: 150 MG ONCE A MO. (1996-8-010)
  2. BONIVA [Suspect]
     Dosage: (1985-10-010)

REACTIONS (1)
  - STRESS FRACTURE [None]
